FAERS Safety Report 9416519 (Version 1)
Quarter: 2013Q3

REPORT INFORMATION
  Report Type: Spontaneous
  Country: US (occurrence: US)
  Receive Date: 20130724
  Receipt Date: 20130724
  Transmission Date: 20140515
  Serious: Yes (Death, Other)
  Sender: FDA-Public Use
  Company Number: US-JNJFOC-20130709063

PATIENT
  Age: 80 Year
  Sex: Male
  Weight: 104.33 kg

DRUGS (6)
  1. ZYTIGA [Suspect]
     Indication: PROSTATE CANCER
     Dosage: 250MGX4
     Route: 048
  2. BICALUTAMIDE [Concomitant]
     Route: 065
  3. DONEPEZIL [Concomitant]
     Route: 065
  4. LISINOPRIL [Concomitant]
     Route: 065
  5. NAMENDA [Concomitant]
     Route: 065
  6. PREDNISONE [Concomitant]
     Route: 065

REACTIONS (3)
  - Prostate cancer [Fatal]
  - Mental status changes [Unknown]
  - Metastases to central nervous system [Unknown]
